FAERS Safety Report 4840085-1 (Version None)
Quarter: 2005Q4

REPORT INFORMATION
  Report Type: 
  Country: None (occurrence: None)
  Receive Date: 20051125
  Receipt Date: 20051117
  Transmission Date: 20060501
  Serious: Yes (Hospitalization)
  Sender: FDA-Public Use
  Company Number: 2005154994

PATIENT
  Sex: Male
  Weight: 113.3993 kg

DRUGS (7)
  1. LISTERINE (MENTHOL, METHYL SALICYLATE, EUCALYPTOL, THYMOL) [Suspect]
     Indication: DENTURE WEARER
     Dosage: ORAL TOPICAL
     Route: 048
  2. EFFERDENT ANTI-BACTERIAL DENTURE CLEANSER (SODIUM PERBORATE MONOHYDRAT [Suspect]
     Indication: DENTURE WEARER
     Dosage: 1 TABLET 2 TO 3 TIMES DAILY, ORAL TOPICAL
     Route: 048
     Dates: end: 20041201
  3. SODIUM BICARBONATE IN PLASTIC CONTAINER [Suspect]
     Indication: DENTURE WEARER
     Dosage: ORAL TOPICAL
     Route: 048
  4. DIURETICS (DIURETICS) [Concomitant]
  5. RANITIDINE HYDROCHLORIDE [Concomitant]
  6. FUROSEMIDE [Concomitant]
  7. DRUG (DRUG) [Concomitant]

REACTIONS (4)
  - ABDOMINAL PAIN [None]
  - BLOOD URINE PRESENT [None]
  - DEPRESSION [None]
  - HAEMORRHAGE [None]
